FAERS Safety Report 4471705-1 (Version None)
Quarter: 2004Q4

REPORT INFORMATION
  Report Type: 
  Country: None (occurrence: None)
  Receive Date: 20041007
  Receipt Date: 20041005
  Transmission Date: 20050328
  Serious: Yes (Life-Threatening)
  Sender: FDA-Public Use
  Company Number: 200410514BYL

PATIENT
  Age: 88 Year
  Sex: Male

DRUGS (4)
  1. CIPROFLOXACIN [Suspect]
     Indication: PNEUMONIA
     Dosage: 300 MG, BID, INTRAVENOUS
     Route: 042
  2. ISEPACIN (ISEPAMICIN SULFATE) [Suspect]
     Indication: PNEUMONIA
     Dosage: 400 MG, QD
  3. MEROPEN [Concomitant]
  4. PENTICILLIN [Concomitant]

REACTIONS (1)
  - INTERSTITIAL LUNG DISEASE [None]
